FAERS Safety Report 13678727 (Version 4)
Quarter: 2020Q2

REPORT INFORMATION
  Report Type: Spontaneous
  Country: US (occurrence: US)
  Receive Date: 20170622
  Receipt Date: 20200424
  Transmission Date: 20200713
  Serious: No
  Sender: FDA-Public Use
  Company Number: US-SA-2017SA092843

PATIENT
  Age: 40 Year
  Sex: Female

DRUGS (3)
  1. CEREZYME [Suspect]
     Active Substance: IMIGLUCERASE
     Dosage: 4800 IU, QOW
     Route: 041
     Dates: start: 20161215
  2. CEREZYME [Suspect]
     Active Substance: IMIGLUCERASE
     Indication: GAUCHER^S DISEASE
     Dosage: 4400 IU, QOW
     Route: 042
     Dates: start: 20161123
  3. CEREZYME [Suspect]
     Active Substance: IMIGLUCERASE
     Dosage: 4400 U, QOW
     Route: 042
     Dates: start: 20161214

REACTIONS (2)
  - Exposure during pregnancy [Unknown]
  - Product dose omission [Unknown]

NARRATIVE: CASE EVENT DATE: 20200325
